FAERS Safety Report 9915786 (Version 6)
Quarter: 2014Q4

REPORT INFORMATION
  Report Type: Spontaneous
  Country: US (occurrence: US)
  Receive Date: 20140221
  Receipt Date: 20141218
  Transmission Date: 20150529
  Serious: Yes (Other)
  Sender: FDA-Public Use
  Company Number: US-009507513-1402USA008032

PATIENT
  Sex: Male
  Weight: 93.42 kg

DRUGS (5)
  1. AVODART [Concomitant]
     Active Substance: DUTASTERIDE
     Indication: PROSTATOMEGALY
     Dosage: UNK
     Dates: start: 20021120, end: 2010
  2. ANALGESIC (UNSPECIFIED) [Concomitant]
     Active Substance: UNSPECIFIED INGREDIENT
     Dosage: UNK
     Dates: start: 1988
  3. PROSCAR [Suspect]
     Active Substance: FINASTERIDE
     Indication: BENIGN PROSTATIC HYPERPLASIA
     Dosage: 5 MG, QD
     Route: 048
     Dates: start: 20021120, end: 20060526
  4. FLOMAX [Concomitant]
     Active Substance: TAMSULOSIN HYDROCHLORIDE
     Indication: PROSTATOMEGALY
     Dosage: 0.4 MG, UNK
     Dates: start: 20041014, end: 2010
  5. AMBIEN [Concomitant]
     Active Substance: ZOLPIDEM TARTRATE
     Dosage: UNK
     Dates: start: 2000

REACTIONS (21)
  - Type V hyperlipidaemia [Unknown]
  - Calculus prostatic [Unknown]
  - Liver disorder [Unknown]
  - Abdominal pain lower [Unknown]
  - Vitamin D deficiency [Unknown]
  - Clavicle fracture [Unknown]
  - Urinary tract infection [Unknown]
  - Erectile dysfunction [Recovered/Resolved]
  - Basal cell carcinoma [Unknown]
  - Essential hypertension [Unknown]
  - Back pain [Unknown]
  - Skin neoplasm excision [Unknown]
  - Sexual dysfunction [Not Recovered/Not Resolved]
  - Biopsy prostate [Unknown]
  - Limb injury [Unknown]
  - Anxiety [Unknown]
  - Knee operation [Unknown]
  - Panic attack [Unknown]
  - Prostate cancer [Unknown]
  - Gynaecomastia [Unknown]
  - Drug ineffective [Unknown]

NARRATIVE: CASE EVENT DATE: 20021216
